FAERS Safety Report 9425313 (Version 1)
Quarter: 2013Q3

REPORT INFORMATION
  Report Type: Spontaneous
  Country: JP (occurrence: JP)
  Receive Date: 20130729
  Receipt Date: 20130729
  Transmission Date: 20140515
  Serious: Yes (Other)
  Sender: FDA-Public Use
  Company Number: PHHY2013JP078646

PATIENT
  Sex: Female

DRUGS (8)
  1. OXALIPLATIN [Suspect]
     Dosage: 100MG ON DAY 1
     Dates: end: 200904
  2. FOLINIC ACID [Suspect]
     Dosage: 125MG ON DAYS 1 AND 2
     Dates: end: 200904
  3. FOLINIC ACID [Suspect]
     Dosage: 250 MG, UNK
     Dates: end: 200906
  4. 5-FLUOROURACIL [Suspect]
     Dosage: 500 MG, UNK
     Route: 040
     Dates: end: 200904
  5. 5-FLUOROURACIL [Suspect]
     Dosage: 750MG INFUSION ON DAYS 1 AND 2
     Dates: end: 200904
  6. 5-FLUOROURACIL [Suspect]
     Dosage: 500 MG, UNK
     Route: 040
     Dates: end: 200906
  7. 5-FLUOROURACIL [Suspect]
     Dosage: 3700 MG, UNK
     Dates: end: 200906
  8. IRINOTECAN [Suspect]
     Dosage: 160 MG, UNK
     Dates: end: 200906

REACTIONS (6)
  - Neuropathy peripheral [Unknown]
  - Paralysis [Unknown]
  - Stomatitis [Unknown]
  - Decreased appetite [Unknown]
  - Alopecia [Unknown]
  - Nausea [Unknown]
